FAERS Safety Report 5468954-2 (Version None)
Quarter: 2007Q4

REPORT INFORMATION
  Report Type: 
  Country: None (occurrence: None)
  Receive Date: 20070820
  Receipt Date: 20070430
  Transmission Date: 20080405
  Serious: No
  Sender: FDA-Public Use
  Company Number: WAES 0703USA05423

PATIENT
  Age: 59 Year
  Sex: Male
  Weight: 103.4201 kg

DRUGS (2)
  1. JANUVIA [Suspect]
     Indication: TYPE 2 DIABETES MELLITUS
     Dosage: 50 MG/DAILY/PO
     Route: 048
  2. INSULIN [Concomitant]

REACTIONS (4)
  - ABDOMINAL PAIN [None]
  - ASTHENIA [None]
  - NAUSEA [None]
  - WRONG TECHNIQUE IN DRUG USAGE PROCESS [None]
